FAERS Safety Report 8423419 (Version 15)
Quarter: 2014Q2

REPORT INFORMATION
  Report Type: Report from Study
  Country: CA (occurrence: CA)
  Receive Date: 20120223
  Receipt Date: 20140425
  Transmission Date: 20141212
  Serious: Yes (Hospitalization, Other)
  Sender: FDA-Public Use
  Company Number: PHHY2011CA20696

PATIENT
  Age: 65 Year
  Sex: Female

DRUGS (5)
  1. SANDOSTATIN LAR [Suspect]
     Indication: CARCINOID TUMOUR
     Dosage: 30 MG, QMO
     Route: 030
     Dates: start: 20110304
  2. SANDOSTATIN LAR [Suspect]
     Dosage: 50MG, EVERY 4 WEEKS
     Route: 030
  3. SANDOSTATIN LAR [Suspect]
     Dosage: 50 MG, QMO
     Route: 030
  4. SANDOSTATIN LAR [Suspect]
     Dosage: 30 MG, QMO
  5. SANDOSTATIN LAR [Suspect]
     Dosage: 50 MG, UNK
     Dates: start: 20140417

REACTIONS (27)
  - Clostridium difficile infection [Unknown]
  - Arthritis infective [Unknown]
  - Wound [Unknown]
  - Joint abscess [Unknown]
  - Joint swelling [Unknown]
  - Arthralgia [Unknown]
  - Mass [Unknown]
  - Hernia [Unknown]
  - Fatigue [Unknown]
  - Abdominal pain [Unknown]
  - Gastric disorder [Unknown]
  - Hypophagia [Unknown]
  - Anxiety [Unknown]
  - Nasopharyngitis [Unknown]
  - Nasal congestion [Unknown]
  - Oropharyngeal pain [Unknown]
  - Memory impairment [Unknown]
  - Musculoskeletal pain [Unknown]
  - Aggression [Unknown]
  - Weight decreased [Unknown]
  - Pain [Unknown]
  - Bacterial infection [Unknown]
  - Agitation [Unknown]
  - Malaise [Unknown]
  - Decreased appetite [Unknown]
  - Vomiting [Unknown]
  - Drug ineffective [Unknown]
